FAERS Safety Report 8987687 (Version 1)
Quarter: 2012Q4

REPORT INFORMATION
  Report Type: Report from Study
  Country: US (occurrence: US)
  Receive Date: 20121227
  Receipt Date: 20121227
  Transmission Date: 20130627
  Serious: Yes (Hospitalization)
  Sender: FDA-Public Use
  Company Number: US-BRISTOL-MYERS SQUIBB COMPANY-17224130

PATIENT
  Age: 66 Year
  Sex: Male

DRUGS (18)
  1. CETUXIMAB [Suspect]
     Indication: THYMOMA
  2. CISPLATIN [Suspect]
     Indication: THYMOMA
  3. CYCLOPHOSPHAMIDE [Suspect]
     Indication: THYMOMA
  4. DOXORUBICIN [Suspect]
     Indication: THYMOMA
  5. ALCLOMETASONE DIPROPIONATE [Concomitant]
  6. APREPITANT [Concomitant]
  7. ASPIRIN [Concomitant]
  8. CIPROFLOXACIN [Concomitant]
  9. CRANBERRY [Concomitant]
  10. DEXAMETHASONE [Concomitant]
  11. DOCUSATE SODIUM [Concomitant]
  12. LOSARTAN POTASSIUM [Concomitant]
  13. MAGIC MOUTHWASH [Concomitant]
  14. METFORMIN [Concomitant]
  15. MULTIVITAMIN W/IRON [Concomitant]
  16. ONDANSETRON [Concomitant]
  17. POTASSIUM [Concomitant]
  18. VITAMIN B12 [Concomitant]

REACTIONS (2)
  - Stomatitis [Unknown]
  - Neutropenia [Unknown]
